FAERS Safety Report 23541198 (Version 1)
Quarter: 2024Q1

REPORT INFORMATION
  Report Type: Spontaneous
  Country: IT (occurrence: IT)
  Receive Date: 20240219
  Receipt Date: 20240219
  Transmission Date: 20240410
  Serious: Yes (Hospitalization, Other)
  Sender: FDA-Public Use
  Company Number: IT-ELI_LILLY_AND_COMPANY-IT202402007484

PATIENT
  Age: 68 Year
  Sex: Female

DRUGS (2)
  1. GEMCITABINE HYDROCHLORIDE [Suspect]
     Active Substance: GEMCITABINE HYDROCHLORIDE
     Indication: Pancreatic carcinoma
     Dosage: UNK, UNKNOWN
     Route: 065
  2. PACLITAXEL [Concomitant]
     Active Substance: PACLITAXEL
     Indication: Pancreatic carcinoma

REACTIONS (10)
  - Cholangitis acute [Unknown]
  - Intervertebral discitis [Unknown]
  - Sepsis [Unknown]
  - Biliary anastomosis complication [Unknown]
  - Malignant neoplasm progression [Unknown]
  - Cytomegalovirus pericarditis [Unknown]
  - Hepatic cytolysis [Unknown]
  - Cholestasis [Unknown]
  - Biliary dilatation [Unknown]
  - Clostridium difficile colitis [Unknown]
